FAERS Safety Report 11459894 (Version 1)
Quarter: 2015Q3

REPORT INFORMATION
  Report Type: Report from Study
  Country: US (occurrence: US)
  Receive Date: 20150904
  Receipt Date: 20150904
  Transmission Date: 20151125
  Serious: Yes (Hospitalization)
  Sender: FDA-Public Use
  Company Number: US-AMGEN-USASP2015089616

PATIENT
  Age: 25 Year
  Sex: Female

DRUGS (1)
  1. CORLANOR [Suspect]
     Active Substance: IVABRADINE HYDROCHLORIDE
     Indication: SINUS TACHYCARDIA
     Dosage: UNK UNK, UNK
     Route: 065
     Dates: start: 2015

REACTIONS (3)
  - Nausea [Unknown]
  - Adverse drug reaction [Unknown]
  - Vomiting [Unknown]

NARRATIVE: CASE EVENT DATE: 2015
